FAERS Safety Report 6286580-2 (Version None)
Quarter: 2009Q3

REPORT INFORMATION
  Report Type: 
  Country: None (occurrence: None)
  Receive Date: 20090728
  Receipt Date: 20090720
  Transmission Date: 20100115
  Serious: Yes (Death)
  Sender: FDA-Public Use
  Company Number: UA-ELI_LILLY_AND_COMPANY-UA200907004069

PATIENT
  Age: 60 Year
  Sex: Male

DRUGS (1)
  1. GEMZAR [Suspect]
     Indication: ADENOCARCINOMA PANCREAS
     Dosage: UNK UNK, WEEKLY (1/W)
     Route: 065

REACTIONS (1)
  - DEATH [None]
